FAERS Safety Report 16903875 (Version 1)
Quarter: 2019Q4

REPORT INFORMATION
  Report Type: Spontaneous
  Country: US (occurrence: US)
  Receive Date: 20191010
  Receipt Date: 20191010
  Transmission Date: 20200122
  Serious: No
  Sender: FDA-Public Use
  Company Number: US-BAYER-2019-179678

PATIENT
  Sex: Male

DRUGS (4)
  1. KETOROLAC [Concomitant]
     Active Substance: KETOROLAC TROMETHAMINE
  2. IBUPROFEN. [Concomitant]
     Active Substance: IBUPROFEN
  3. ASPIRIN [ACETYLSALICYLIC ACID] [Concomitant]
     Active Substance: ASPIRIN
  4. ALEVE [Suspect]
     Active Substance: NAPROXEN SODIUM
     Indication: PAIN
     Dosage: 1 DF, QD
     Route: 048
     Dates: start: 2019, end: 2019

REACTIONS (1)
  - Abdominal discomfort [Unknown]
